FAERS Safety Report 9476169 (Version 1)
Quarter: 2013Q3

REPORT INFORMATION
  Report Type: Spontaneous
  Country: JP (occurrence: None)
  Receive Date: 20130821
  Receipt Date: 20130821
  Transmission Date: 20140515
  Serious: Yes (Other)
  Sender: FDA-Public Use
  Company Number: CO-OR-JP-2013-019

PATIENT
  Age: 72 Year
  Sex: Female

DRUGS (9)
  1. PREDNISOLONE [Suspect]
     Dosage: AND TAPERED BY 5MG EVERY 14 DAYS, ORAL
     Route: 048
  2. SORAFENIB [Suspect]
     Dates: start: 201104
  3. VOGLIBOSE (VOGLIBOSE [Concomitant]
  4. GLIMEPIRIDE (GLIMEPIRIDE) [Concomitant]
  5. URSODEOXYCHLIC ACID) (URSODEOXYCHLOIC ACID) [Concomitant]
  6. BRANCHED-CHAIN AMINO ACID GRANULES (BRACHED-CHAIN AMINO ACID GRANULES) [Concomitant]
  7. CARBOCYSTEINE [Concomitant]
  8. RABEPRAZOLE [Concomitant]
  9. (LEVOTHYROXINE ) [Concomitant]

REACTIONS (6)
  - Stomatitis [None]
  - Palmar-plantar erythrodysaesthesia syndrome [None]
  - Erythema [None]
  - Skin lesion [None]
  - Hepatocellular carcinoma [None]
  - Malignant neoplasm progression [None]
